APPROVED DRUG PRODUCT: ESTRADIOL VALERATE
Active Ingredient: ESTRADIOL VALERATE
Strength: 20MG/ML
Dosage Form/Route: INJECTABLE;INJECTION
Application: A090920 | Product #001 | TE Code: AO
Applicant: AMERICAN REGENT INC
Approved: Jan 19, 2010 | RLD: No | RS: No | Type: RX